FAERS Safety Report 23131890 (Version 1)
Quarter: 2023Q4

REPORT INFORMATION
  Report Type: Report from Study
  Country: US (occurrence: US)
  Receive Date: 20231101
  Receipt Date: 20231101
  Transmission Date: 20240110
  Serious: Yes (Hospitalization)
  Sender: FDA-Public Use
  Company Number: US-ABBVIE-5473871

PATIENT
  Sex: Female

DRUGS (1)
  1. HUMIRA [Suspect]
     Active Substance: ADALIMUMAB
     Indication: Product used for unknown indication
     Route: 058
     Dates: end: 2023

REACTIONS (5)
  - Full blood count increased [Unknown]
  - Gastrointestinal pain [Recovered/Resolved]
  - Infection parasitic [Unknown]
  - Inflammatory marker increased [Unknown]
  - Drug tolerance [Unknown]

NARRATIVE: CASE EVENT DATE: 20230101
